FAERS Safety Report 8447140-8 (Version None)
Quarter: 2012Q2

REPORT INFORMATION
  Report Type: 
  Country: None (occurrence: None)
  Receive Date: 20120612
  Receipt Date: 20120531
  Transmission Date: 20120825
  Serious: Yes (Hospitalization)
  Sender: FDA-Public Use
  Company Number: ACO_30634_2012

PATIENT
  Age: 51 Year
  Sex: Female

DRUGS (3)
  1. FAMPYRA (DALFAMPRIDINE) TABLET, 10MG [Suspect]
     Indication: MULTIPLE SCLEROSIS
     Dosage: 10 MG, BID, ORAL
     Route: 048
     Dates: start: 20120501, end: 20120601
  2. SEROQUEL [Concomitant]
  3. ORFIRIL LONG (VALPROIC ACID) [Concomitant]

REACTIONS (4)
  - DRY MOUTH [None]
  - URINARY TRACT INFECTION [None]
  - COORDINATION ABNORMAL [None]
  - DRUG INTERACTION [None]
